FAERS Safety Report 24921258 (Version 1)
Quarter: 2025Q1

REPORT INFORMATION
  Report Type: Spontaneous
  Country: CO (occurrence: CO)
  Receive Date: 20250204
  Receipt Date: 20250204
  Transmission Date: 20250409
  Serious: Yes (Hospitalization)
  Sender: REGENERON
  Company Number: CO-SA-2025SA029332

PATIENT
  Age: 92 Year
  Sex: Female

DRUGS (1)
  1. PRALUENT [Suspect]
     Active Substance: ALIROCUMAB
     Indication: Type IIa hyperlipidaemia
     Dosage: 75 MG, Q15D
     Route: 058
     Dates: start: 2022

REACTIONS (1)
  - Hernia [Recovering/Resolving]
